FAERS Safety Report 19723830 (Version 1)
Quarter: 2021Q3

REPORT INFORMATION
  Report Type: Spontaneous
  Country: US (occurrence: US)
  Receive Date: 20210820
  Receipt Date: 20210820
  Transmission Date: 20211014
  Serious: No
  Sender: FDA-Public Use
  Company Number: US-TEVA-2021-US-1944043

PATIENT
  Age: 53 Year
  Sex: Female
  Weight: 101.6 kg

DRUGS (2)
  1. AJOVY [Suspect]
     Active Substance: FREMANEZUMAB-VFRM
     Dosage: 225 MG MONTHLY
     Route: 065
     Dates: start: 20210812
  2. AJOVY [Suspect]
     Active Substance: FREMANEZUMAB-VFRM
     Indication: HEMIPLEGIC MIGRAINE
     Dosage: 225 MG MONTHLY
     Route: 065
     Dates: start: 2020

REACTIONS (3)
  - Needle issue [Unknown]
  - Injection site pain [Unknown]
  - Migraine [Recovered/Resolved]

NARRATIVE: CASE EVENT DATE: 202108
